FAERS Safety Report 8062751-X (Version None)
Quarter: 2012Q1

REPORT INFORMATION
  Report Type: 
  Country: None (occurrence: None)
  Receive Date: 20120123
  Receipt Date: 20120117
  Transmission Date: 20120608
  Serious: Yes (Hospitalization)
  Sender: FDA-Public Use
  Company Number: US-PFIZER INC-K200900464

PATIENT
  Age: 79 Year
  Sex: Male

DRUGS (11)
  1. RAMIPRIL [Suspect]
     Dosage: UNK
     Route: 048
     Dates: start: 20090101
  2. KARDEGIC /00002703/ [Concomitant]
     Dosage: UNK, QD
     Dates: start: 20010101
  3. FINASTERIDE [Concomitant]
     Dosage: UNK
     Route: 048
     Dates: start: 20010101
  4. AMLODIPINE BESYLATE [Suspect]
     Dosage: UNK
     Route: 048
     Dates: start: 20090101
  5. RILMENIDINE [Concomitant]
     Dosage: 2 MG, UNK
     Route: 048
     Dates: start: 20010101
  6. GLUCOPHAGE [Suspect]
     Dosage: UNK
     Route: 048
     Dates: start: 20090101
  7. FLECAINIDE [Concomitant]
     Dosage: 200 MG, UNK
     Route: 048
     Dates: start: 20010101
  8. LOSARTAN [Concomitant]
     Dosage: 50 MG, UNK
     Route: 048
     Dates: start: 20010101
  9. AMLODIPINE BESYLATE [Suspect]
     Dosage: UNK
     Route: 048
     Dates: start: 20010101, end: 20081224
  10. RAMIPRIL [Suspect]
     Dosage: UNK
     Route: 048
     Dates: start: 20010101, end: 20090120
  11. GLUCOPHAGE [Suspect]
     Indication: TYPE 2 DIABETES MELLITUS
     Dosage: 15 MG, 1X/DAY
     Route: 048
     Dates: start: 20010101, end: 20090120

REACTIONS (3)
  - DRY EYE [None]
  - DRY MOUTH [None]
  - PRURITUS GENERALISED [None]
